FAERS Safety Report 8204861-X (Version None)
Quarter: 2012Q1

REPORT INFORMATION
  Report Type: 
  Country: None (occurrence: None)
  Receive Date: 20120313
  Receipt Date: 20120308
  Transmission Date: 20120608
  Serious: No
  Sender: FDA-Public Use
  Company Number: US-TEVA-327273USA

PATIENT
  Sex: Female

DRUGS (3)
  1. PROAIR HFA [Suspect]
     Indication: ASTHMA
     Route: 055
     Dates: start: 20120224, end: 20120308
  2. LEVOFLOXACIN [Concomitant]
     Indication: RESPIRATORY TRACT INFECTION
     Dosage: 500 MILLIGRAM;
     Route: 048
  3. THEOPHYLLINE [Concomitant]
     Indication: ASTHMA
     Dosage: 600 MILLIGRAM;
     Route: 048
     Dates: start: 20120224

REACTIONS (3)
  - THROAT IRRITATION [None]
  - OROPHARYNGEAL PAIN [None]
  - PHARYNGEAL HYPOAESTHESIA [None]
